FAERS Safety Report 14544125 (Version 3)
Quarter: 2018Q2

REPORT INFORMATION
  Report Type: Report from Study
  Country: US (occurrence: US)
  Receive Date: 20180216
  Receipt Date: 20180418
  Transmission Date: 20180711
  Serious: Yes (Hospitalization)
  Sender: FDA-Public Use
  Company Number: US-ACTELION-A-NJ2018-167670

PATIENT
  Age: 65 Year
  Sex: Female

DRUGS (4)
  1. REMODULIN [Concomitant]
     Active Substance: TREPROSTINIL
     Dosage: 40 MG/KG, PER MIN
     Route: 042
     Dates: start: 20180129
  2. OPSUMIT [Suspect]
     Active Substance: MACITENTAN
     Indication: PULMONARY ARTERIAL HYPERTENSION
     Dosage: 10 MG, QD
     Route: 048
     Dates: start: 20170915
  3. ORENITRAM [Concomitant]
     Active Substance: TREPROSTINIL
     Dosage: 0.5 MG, TID
     Dates: start: 201712, end: 201801
  4. REVATIO [Concomitant]
     Active Substance: SILDENAFIL CITRATE
     Dosage: 20 MG, TID

REACTIONS (5)
  - Acute kidney injury [Recovered/Resolved]
  - Fatigue [Recovered/Resolved]
  - Pulmonary hypertension [Unknown]
  - Pneumonia [Recovered/Resolved]
  - Dyspnoea [Recovered/Resolved]

NARRATIVE: CASE EVENT DATE: 20180124
